FAERS Safety Report 11681455 (Version 1)
Quarter: 2015Q4

REPORT INFORMATION
  Report Type: Spontaneous
  Country: US (occurrence: None)
  Receive Date: 20151027
  Receipt Date: 20151027
  Transmission Date: 20160304
  Serious: Yes (Death)
  Sender: FDA-Public Use
  Company Number: 2015000046

PATIENT
  Age: 41 Year
  Sex: Female

DRUGS (4)
  1. BUPROPION HCL (BUPROPION HYDROCHLORIDE) [Concomitant]
     Active Substance: BUPROPION HYDROCHLORIDE
  2. TRAZODONE [Suspect]
     Active Substance: TRAZODONE HYDROCHLORIDE
     Indication: PRODUCT USED FOR UNKNOWN INDICATION
  3. ETHANOL (ETHANOL) [Concomitant]
     Active Substance: ALCOHOL
  4. VENLAFAXINE HYDROCHORIDE (VENLAFAXINE HYDROCHLORIDE) [Concomitant]

REACTIONS (2)
  - Completed suicide [None]
  - Asphyxia [None]
